FAERS Safety Report 17395923 (Version 3)
Quarter: 2020Q3

REPORT INFORMATION
  Report Type: Report from Study
  Country: US (occurrence: US)
  Receive Date: 20200210
  Receipt Date: 20200702
  Transmission Date: 20201102
  Serious: Yes (Hospitalization)
  Sender: FDA-Public Use
  Company Number: NVSC2020US029819

PATIENT
  Age: 7 Year
  Sex: Male

DRUGS (3)
  1. SB497115 [Suspect]
     Active Substance: ELTROMBOPAG
     Indication: APLASTIC ANAEMIA
     Dosage: 150 MG, ONCE/SINGLE
     Route: 048
     Dates: start: 20191231
  2. CYCLOSPORINE. [Suspect]
     Active Substance: CYCLOSPORINE
     Indication: APLASTIC ANAEMIA
     Dosage: 70 MG, BID
     Route: 048
     Dates: start: 20191230
  3. CYCLOSPORINE. [Suspect]
     Active Substance: CYCLOSPORINE
     Dosage: 70 MG, BID
     Route: 048
     Dates: start: 20200203

REACTIONS (1)
  - Rash erythematous [Recovered/Resolved]

NARRATIVE: CASE EVENT DATE: 20200128
